FAERS Safety Report 25859538 (Version 1)
Quarter: 2025Q3

REPORT INFORMATION
  Report Type: Spontaneous
  Country: US (occurrence: US)
  Receive Date: 20250929
  Receipt Date: 20250929
  Transmission Date: 20251021
  Serious: Yes (Hospitalization)
  Sender: CHIESI
  Company Number: US-CHIESI-2025CHF00246

PATIENT
  Sex: Male
  Weight: 52 kg

DRUGS (4)
  1. FERRIPROX [Suspect]
     Active Substance: DEFERIPRONE
     Indication: Haemochromatosis
     Route: 048
     Dates: start: 20240313
  2. FERRIPROX [Suspect]
     Active Substance: DEFERIPRONE
     Indication: Red blood cell transfusion
  3. FERRIPROX [Suspect]
     Active Substance: DEFERIPRONE
     Indication: Aplastic anaemia
  4. FERRIPROX [Suspect]
     Active Substance: DEFERIPRONE
     Indication: Bone marrow failure

REACTIONS (1)
  - Pneumonia [Recovering/Resolving]
